FAERS Safety Report 13656331 (Version 6)
Quarter: 2017Q3

REPORT INFORMATION
  Report Type: Report from Study
  Country: BR (occurrence: BR)
  Receive Date: 20170615
  Receipt Date: 20170830
  Transmission Date: 20171127
  Serious: Yes (Other)
  Sender: FDA-Public Use
  Company Number: PHHY2017BR086225

PATIENT
  Sex: Male
  Weight: 82 kg

DRUGS (10)
  1. DIOVAN [Suspect]
     Active Substance: VALSARTAN
     Indication: RENAL DISORDER
     Dosage: 1 DF, QD
     Route: 048
     Dates: start: 201304
  2. ALPRAZOLAM. [Concomitant]
     Active Substance: ALPRAZOLAM
     Indication: PRODUCT USED FOR UNKNOWN INDICATION
     Dosage: 0.5 DF, BID (HALF A TABLET IN THE MORNING AND HALF A TABLET AT NIGHT)
     Route: 048
  3. SEEBRI BREEZHALER [Suspect]
     Active Substance: GLYCOPYRROLATE
     Indication: CHRONIC OBSTRUCTIVE PULMONARY DISEASE
     Dosage: 1 DF, QD
     Route: 055
     Dates: start: 201602
  4. NPH INSULIN [Concomitant]
     Active Substance: INSULIN BEEF
     Indication: DIABETES MELLITUS
     Dosage: 28 UNITS IN THE MORNING AND 22 UNITS AT NIGHT
     Route: 065
     Dates: start: 1990
  5. GALVUS [Suspect]
     Active Substance: VILDAGLIPTIN
     Indication: TYPE 2 DIABETES MELLITUS
  6. INSULIN [Concomitant]
     Active Substance: INSULIN NOS
     Indication: BLOOD GLUCOSE ABNORMAL
     Dosage: 2 DF QD (25 UNITS OF INSULIN IN THE MORNING AND 25 UNITS OF INSULIN AT NIGHT DAILY)
     Route: 065
  7. DIOVAN [Suspect]
     Active Substance: VALSARTAN
     Dosage: 1 DF (80 MG), QD
     Route: 048
  8. GALVUS [Suspect]
     Active Substance: VILDAGLIPTIN
     Indication: BLOOD GLUCOSE ABNORMAL
     Dosage: 1 DF, QD (1 IN THE MORNING RIGHT AFTER BREAKFAST)
     Route: 048
     Dates: start: 2014
  9. INSULIN [Concomitant]
     Active Substance: INSULIN NOS
     Dosage: 28 MG, BID
     Route: 065
  10. DIOVAN HCT [Suspect]
     Active Substance: HYDROCHLOROTHIAZIDE\VALSARTAN
     Indication: RENAL DISORDER
     Dosage: 1 DF, QD (BEFORE BREAKFAST)
     Route: 048
     Dates: start: 201304

REACTIONS (13)
  - Chronic obstructive pulmonary disease [Unknown]
  - Cerebrovascular accident [Unknown]
  - Aortic aneurysm [Not Recovered/Not Resolved]
  - Prostatic specific antigen abnormal [Unknown]
  - Urine output increased [Recovered/Resolved]
  - Drug intolerance [Unknown]
  - Anxiety [Recovered/Resolved]
  - Blood glucose increased [Recovered/Resolved]
  - Urinary tract disorder [Recovering/Resolving]
  - Weight decreased [Recovering/Resolving]
  - Fatigue [Unknown]
  - Product use in unapproved indication [Unknown]
  - Weight increased [Recovering/Resolving]

NARRATIVE: CASE EVENT DATE: 2013
